FAERS Safety Report 21383303 (Version 1)
Quarter: 2022Q3

REPORT INFORMATION
  Report Type: Report from Study
  Country: US (occurrence: US)
  Receive Date: 20220927
  Receipt Date: 20220927
  Transmission Date: 20221027
  Serious: Yes (Disabling, Other)
  Sender: FDA-Public Use
  Company Number: US-ABBVIE-22K-163-4364219-00

PATIENT
  Age: 34 Year
  Sex: Female
  Weight: 103.87 kg

DRUGS (2)
  1. HUMIRA [Suspect]
     Active Substance: ADALIMUMAB
     Indication: Rheumatoid arthritis
     Route: 058
     Dates: start: 20100101, end: 20111219
  2. DIAMOX SEQUELS [Concomitant]
     Active Substance: ACETAZOLAMIDE
     Indication: Product used for unknown indication
     Dosage: 200 PILLS
     Route: 048
     Dates: start: 2010, end: 2011

REACTIONS (3)
  - Cerebrovascular accident [Recovered/Resolved with Sequelae]
  - Ventriculo-peritoneal shunt [Unknown]
  - Visual field defect [Recovered/Resolved with Sequelae]

NARRATIVE: CASE EVENT DATE: 20100101
